FAERS Safety Report 5752762-9 (Version None)
Quarter: 2008Q2

REPORT INFORMATION
  Report Type: 
  Country: None (occurrence: None)
  Receive Date: 20080529
  Receipt Date: 20080519
  Transmission Date: 20081010
  Serious: Yes (Other)
  Sender: FDA-Public Use
  Company Number: US-PFIZER INC-2008043012

PATIENT
  Sex: Female

DRUGS (2)
  1. XANAX [Suspect]
  2. ZOLOFT [Suspect]

REACTIONS (2)
  - DEPRESSION [None]
  - DRUG DEPENDENCE [None]
